FAERS Safety Report 7061055-1 (Version None)
Quarter: 2010Q4

REPORT INFORMATION
  Report Type: 
  Country: None (occurrence: None)
  Receive Date: 20101026
  Receipt Date: 20101021
  Transmission Date: 20110411
  Serious: Yes (Other)
  Sender: FDA-Public Use
  Company Number: CN-PFIZER INC-2010134205

PATIENT
  Age: 43 Year
  Sex: Male

DRUGS (4)
  1. SOLU-MEDROL [Suspect]
     Indication: ASTHMA
     Dosage: 80 MG, 2X/DAY
     Dates: start: 20100101, end: 20100101
  2. SOLU-MEDROL [Suspect]
     Dosage: 160 MG, 2X/DAY
     Dates: start: 20100101
  3. MEDROL [Suspect]
     Indication: ASTHMA
     Dosage: 36 MG, DAILY
     Route: 048
     Dates: start: 20100101
  4. AMINOPHYLLINE [Concomitant]
     Indication: ASTHMA
     Dosage: UNK
     Dates: end: 20100101

REACTIONS (4)
  - BLOOD PRESSURE INCREASED [None]
  - FLUID RETENTION [None]
  - SINUS TACHYCARDIA [None]
  - SODIUM RETENTION [None]
